FAERS Safety Report 15390714 (Version 2)
Quarter: 2019Q1

REPORT INFORMATION
  Report Type: Spontaneous
  Country: US (occurrence: US)
  Receive Date: 20180917
  Receipt Date: 20190128
  Transmission Date: 20190417
  Serious: No
  Sender: FDA-Public Use
  Company Number: US-SA-2018SA257907

PATIENT
  Age: 48 Year
  Sex: Male

DRUGS (3)
  1. EUCRISA [Concomitant]
     Active Substance: CRISABOROLE
     Dosage: 2 %
  2. DUPILUMAB [Suspect]
     Active Substance: DUPILUMAB
     Indication: DERMATITIS ATOPIC
     Dosage: 300 MG, QOW
     Route: 058
     Dates: start: 201808
  3. CLOBETASOL PROPIONATE. [Concomitant]
     Active Substance: CLOBETASOL PROPIONATE
     Dosage: 0.05 %

REACTIONS (5)
  - Dermatitis [Unknown]
  - Erythema [Recovered/Resolved]
  - Eye pruritus [Unknown]
  - Eye swelling [Unknown]
  - Lacrimation increased [Unknown]

NARRATIVE: CASE EVENT DATE: 201808
